FAERS Safety Report 7894461-3 (Version None)
Quarter: 2011Q4

REPORT INFORMATION
  Report Type: 
  Country: None (occurrence: None)
  Receive Date: 20111102
  Receipt Date: 20111019
  Transmission Date: 20120403
  Serious: Yes (Other)
  Sender: FDA-Public Use
  Company Number: 1000025004

PATIENT
  Age: 82 Year
  Sex: Female

DRUGS (7)
  1. CONIEL (BENIDIPINE HYDROCHLORIDE) (BENIDIPINE HYDROCHLORIDE) [Concomitant]
  2. ALLELOCK (OLOPATADINE HYDROCHLORIDE) (OLOPATADINE HYDROCHLORIDE) [Concomitant]
  3. NASONEX (MOMETASONE FUROATE HYDRATE) (MOMETASONE FUROATE HYDRATE) [Concomitant]
  4. BAYASPIRIN (ACETYLSALICYCLIC ACID) (ACETYLSALICYLIC ACID) [Concomitant]
  5. ARICEPT D (DONEPEZIL HYDROCHLORIDE) (DONEPEZIL HYDROCHLORIDE) [Concomitant]
  6. MEMANTINE HYDROCHLORIDE [Suspect]
     Indication: DEMENTIA ALZHEIMER'S TYPE
     Dosage: 5 MG (5 MG,1 IN 1 D),ORAL
     Route: 048
     Dates: start: 20110707, end: 20110713
  7. MEMANTINE HYDROCHLORIDE [Suspect]
     Indication: DEMENTIA ALZHEIMER'S TYPE
     Dosage: 10 MG (10 MG,1 IN 1 D),ORAL
     Route: 048
     Dates: start: 20110714, end: 20110721

REACTIONS (3)
  - DIZZINESS [None]
  - CONTUSION [None]
  - FALL [None]
